FAERS Safety Report 9646014 (Version 1)
Quarter: 2013Q4

REPORT INFORMATION
  Report Type: Spontaneous
  Country: US (occurrence: US)
  Receive Date: 20131025
  Receipt Date: 20131025
  Transmission Date: 20140711
  Serious: No
  Sender: FDA-Public Use
  Company Number: US-TEVA-440095USA

PATIENT
  Age: 32 Year
  Sex: Female
  Weight: 59.93 kg

DRUGS (1)
  1. PARAGARD 380A [Suspect]
     Indication: CONTRACEPTION
     Dates: start: 20131016, end: 20131016

REACTIONS (1)
  - Abdominal pain [Recovered/Resolved]
